FAERS Safety Report 10037811 (Version 1)
Quarter: 2014Q1

REPORT INFORMATION
  Report Type: Spontaneous
  Country: US (occurrence: None)
  Receive Date: 20140325
  Receipt Date: 20140325
  Transmission Date: 20141002
  Serious: Yes (Life-Threatening)
  Sender: FDA-Public Use
  Company Number: None

PATIENT
  Age: 79 Year
  Sex: Male
  Weight: 87.4 kg

DRUGS (9)
  1. PROTAMINE SULFATE 10 MG/ML [Suspect]
     Indication: ECHOCARDIOGRAM
     Route: 042
     Dates: start: 20140318, end: 20140318
  2. PROTAMINE SULFATE 10 MG/ML [Suspect]
     Indication: CORONARY ARTERY BYPASS
     Route: 042
     Dates: start: 20140318, end: 20140318
  3. HEPARIN 1000 UNITS/ML PORCINE [Suspect]
     Indication: ECHOCARDIOGRAM
     Dosage: 31,000 UNITS ONCE, INTRAVENOUS
     Dates: start: 20140318, end: 20140318
  4. HEPARIN 1000 UNITS/ML PORCINE [Suspect]
     Indication: CORONARY ARTERY BYPASS
     Dosage: 31,000 UNITS ONCE, INTRAVENOUS
     Dates: start: 20140318, end: 20140318
  5. HEPARIN [Concomitant]
  6. CALCIUM CHLORIDE [Concomitant]
  7. PHENYLEPHRINE [Concomitant]
  8. MILRINONE [Concomitant]
  9. FENTANYL [Concomitant]

REACTIONS (2)
  - Hypotension [None]
  - Post procedural haemorrhage [None]
